FAERS Safety Report 7474005-0 (Version None)
Quarter: 2011Q2

REPORT INFORMATION
  Report Type: 
  Country: None (occurrence: None)
  Receive Date: 20110511
  Receipt Date: 20091122
  Transmission Date: 20111010
  Serious: Yes (Death, Other)
  Sender: FDA-Public Use
  Company Number: US-BAYER-200940368NA

PATIENT
  Age: 75 Year
  Sex: Male
  Weight: 83.447 kg

DRUGS (14)
  1. AMIODARONE HCL [Concomitant]
  2. LASIX [Concomitant]
  3. CARDURA [Concomitant]
     Dosage: 4 MG, UNK
     Route: 048
  4. ACETYLSALICYLIC ACID SRT [Concomitant]
     Dosage: 1 TAB
     Route: 048
  5. LANOXIN [Concomitant]
     Dosage: 0.125 MG, UNK
     Route: 048
  6. PLAQUENIL [Concomitant]
     Dosage: 200 MG, QD
     Route: 048
  7. TRASYLOL [Suspect]
     Indication: AORTIC VALVE REPLACEMENT
     Dosage: 200 ML, UNK
     Route: 042
     Dates: start: 20031212
  8. TRASYLOL [Suspect]
     Indication: MITRAL VALVE REPLACEMENT
  9. DIGOXIN [Concomitant]
  10. LEVOX [Concomitant]
  11. SYNTHROID [Concomitant]
     Dosage: 0.125 MG, QD
     Route: 048
  12. VIOXX [Concomitant]
  13. PROCARDIA XL [Concomitant]
     Dosage: 30 MG, QD
     Route: 048
  14. CORDARONE [Concomitant]
     Dosage: 200 MG, QD
     Route: 048

REACTIONS (13)
  - MULTI-ORGAN FAILURE [None]
  - DEATH [None]
  - UNEVALUABLE EVENT [None]
  - FEAR [None]
  - ANHEDONIA [None]
  - EMOTIONAL DISTRESS [None]
  - STRESS [None]
  - ANXIETY [None]
  - INJURY [None]
  - RENAL IMPAIRMENT [None]
  - RENAL FAILURE [None]
  - RENAL INJURY [None]
  - PAIN [None]
